FAERS Safety Report 5151997-6 (Version None)
Quarter: 2006Q4

REPORT INFORMATION
  Report Type: 
  Country: None (occurrence: None)
  Receive Date: 20061116
  Receipt Date: 20061024
  Transmission Date: 20070319
  Serious: Yes (Other)
  Sender: FDA-Public Use
  Company Number: DE-ELI_LILLY_AND_COMPANY-DE200610005004

PATIENT
  Age: 27 Year
  Sex: Male

DRUGS (8)
  1. ZYPREXA [Suspect]
     Indication: DELUSIONAL DISORDER, PERSECUTORY TYPE
     Dosage: 7.5 MG, DAILY (1/D)
     Route: 048
     Dates: start: 20061018, end: 20061018
  2. ZYPREXA [Suspect]
     Dosage: 5 MG, DAILY (1/D)
     Route: 048
     Dates: end: 20061018
  3. AKINETON [Concomitant]
     Dosage: 2 MG, UNK
     Route: 048
     Dates: end: 20061016
  4. MAGNESIUM CARBONATE [Concomitant]
     Dosage: 300 MG, UNK
     Route: 048
     Dates: end: 20061016
  5. LAUBEEL [Concomitant]
     Dosage: 1 MG, UNK
     Route: 048
  6. LAUBEEL [Concomitant]
     Dosage: 2.5 MG, UNK
     Route: 048
  7. LAUBEEL [Concomitant]
     Dosage: 2 MG, UNK
     Route: 048
  8. PEROCUR FORTE [Concomitant]
     Dosage: 250 MG, UNK
     Route: 048

REACTIONS (4)
  - BLOOD CALCIUM INCREASED [None]
  - BLOOD LACTATE DEHYDROGENASE INCREASED [None]
  - GRAND MAL CONVULSION [None]
  - WHITE BLOOD CELL COUNT INCREASED [None]
